FAERS Safety Report 5946119-5 (Version None)
Quarter: 2008Q4

REPORT INFORMATION
  Report Type: 
  Country: None (occurrence: None)
  Receive Date: 20081110
  Receipt Date: 20081105
  Transmission Date: 20090506
  Serious: Yes (Other)
  Sender: FDA-Public Use
  Company Number: US-BAYER-200813814NA

PATIENT
  Age: 30 Year
  Sex: Female

DRUGS (1)
  1. MIRENA [Suspect]
     Indication: CONTRACEPTION
     Route: 015
     Dates: start: 20040701, end: 20071128

REACTIONS (3)
  - ANTEPARTUM HAEMORRHAGE [None]
  - PLACENTA ACCRETA [None]
  - POSTPARTUM HAEMORRHAGE [None]
